FAERS Safety Report 8172865-1 (Version None)
Quarter: 2012Q1

REPORT INFORMATION
  Report Type: 
  Country: None (occurrence: None)
  Receive Date: 20120229
  Receipt Date: 20120217
  Transmission Date: 20120608
  Serious: Yes (Hospitalization)
  Sender: FDA-Public Use
  Company Number: US-JNJFOC-20120210261

PATIENT
  Sex: Female
  Weight: 76.5 kg

DRUGS (7)
  1. ZANTAC [Concomitant]
  2. PRILOSEC [Concomitant]
  3. MERCAPTOPURINE [Concomitant]
  4. REMICADE [Suspect]
     Indication: CROHN'S DISEASE
     Route: 042
     Dates: start: 20100421
  5. METRONIDAZOLE [Concomitant]
  6. REMICADE [Suspect]
     Route: 042
     Dates: start: 20120209
  7. ALLOPURINOL [Concomitant]

REACTIONS (3)
  - CLOSTRIDIAL INFECTION [None]
  - CROHN'S DISEASE [None]
  - DIARRHOEA INFECTIOUS [None]
